FAERS Safety Report 6455848-9 (Version None)
Quarter: 2009Q4

REPORT INFORMATION
  Report Type: 
  Country: None (occurrence: None)
  Receive Date: 20091125
  Receipt Date: 20091117
  Transmission Date: 20100525
  Serious: Yes (Hospitalization)
  Sender: FDA-Public Use
  Company Number: US-BIOGENIDEC-2009BI017816

PATIENT
  Age: 28 Year
  Sex: Female
  Weight: 108 kg

DRUGS (3)
  1. TYSABRI [Suspect]
     Indication: MULTIPLE SCLEROSIS
     Route: 042
     Dates: start: 20090605, end: 20090605
  2. PRILOSEC [Concomitant]
     Dates: start: 20090520
  3. ZITHROMAX [Concomitant]
     Dates: start: 20090520

REACTIONS (5)
  - DIZZINESS [None]
  - PYREXIA [None]
  - SYSTEMIC INFLAMMATORY RESPONSE SYNDROME [None]
  - VISUAL IMPAIRMENT [None]
  - VOMITING [None]
